FAERS Safety Report 5005534-7 (Version None)
Quarter: 2006Q2

REPORT INFORMATION
  Report Type: 
  Country: None (occurrence: None)
  Receive Date: 20060518
  Receipt Date: 20060510
  Transmission Date: 20061013
  Serious: Yes (Death)
  Sender: FDA-Public Use
  Company Number: NZ-ROCHE-447445

PATIENT
  Age: 49 Year
  Sex: Male

DRUGS (1)
  1. PEGASYS [Suspect]
     Indication: DRUG USE FOR UNKNOWN INDICATION
     Dosage: REPORTED AS PEGASYS RBV 180/168.
     Route: 065

REACTIONS (1)
  - HAEMORRHAGE INTRACRANIAL [None]
